FAERS Safety Report 20296793 (Version 1)
Quarter: 2022Q1

REPORT INFORMATION
  Report Type: Spontaneous
  Country: US (occurrence: US)
  Receive Date: 20220105
  Receipt Date: 20220105
  Transmission Date: 20220423
  Serious: No
  Sender: FDA-Public Use
  Company Number: US-009507513-2112USA006385

PATIENT
  Sex: Female

DRUGS (4)
  1. NOXAFIL [Suspect]
     Active Substance: POSACONAZOLE
     Indication: Product used for unknown indication
     Dosage: UNK UNK, UNKNOWN
     Route: 065
  2. CIPRO [Suspect]
     Active Substance: CIPROFLOXACIN HYDROCHLORIDE
     Indication: Product used for unknown indication
     Dosage: UNK UNK, UNKNOWN
     Route: 065
  3. ACYCLOVIR [Suspect]
     Active Substance: ACYCLOVIR
     Indication: Product used for unknown indication
     Dosage: UNK, UNKNOWN
     Route: 065
  4. XOSPATA [Concomitant]
     Active Substance: GILTERITINIB
     Indication: Thrombocytopenia
     Dosage: 80 MILLIGRAM, ONCE DAILY
     Route: 048
     Dates: start: 20211014

REACTIONS (3)
  - Erythema [Unknown]
  - Papule [Unknown]
  - Drug hypersensitivity [Unknown]
